FAERS Safety Report 8153587-X (Version None)
Quarter: 2012Q1

REPORT INFORMATION
  Report Type: 
  Country: None (occurrence: None)
  Receive Date: 20120216
  Receipt Date: 20120216
  Transmission Date: 20120608
  Serious: No
  Sender: FDA-Public Use
  Company Number: None

PATIENT
  Age: 41 Year
  Sex: Male
  Weight: 104.5 kg

DRUGS (3)
  1. LEVAQUIN [Suspect]
     Indication: SURGERY
     Dosage: 500 MG 14 PILLS 14 PILLS ORAL-047
     Route: 048
     Dates: start: 20020404, end: 20020415
  2. METHYLPREDNISOLONE [Concomitant]
  3. LEVAQUIN [Suspect]
     Indication: SURGERY
     Dosage: 500 MG- 4 SCRIPTS 10 PILLS EACH SCRIP ORAL-047
     Route: 048
     Dates: start: 20020423, end: 20020506

REACTIONS (2)
  - JOINT INJURY [None]
  - TENDONITIS [None]
